FAERS Safety Report 12761087 (Version 1)
Quarter: 2016Q3

REPORT INFORMATION
  Report Type: Report from Study
  Country: US (occurrence: US)
  Receive Date: 20160920
  Receipt Date: 20160920
  Transmission Date: 20161109
  Serious: Yes (Life-Threatening, Hospitalization, Other)
  Sender: FDA-Public Use
  Company Number: US-ROCHE-1540763

PATIENT
  Age: 5 Year
  Sex: Female
  Weight: 20.2 kg

DRUGS (2)
  1. CEFTRIAXONE. [Suspect]
     Active Substance: CEFTRIAXONE
     Indication: PYREXIA
     Route: 042
     Dates: start: 20150212
  2. VEMURAFENIB [Suspect]
     Active Substance: VEMURAFENIB
     Indication: BRAIN NEOPLASM MALIGNANT
     Route: 048
     Dates: start: 20150129

REACTIONS (3)
  - Autoimmune haemolytic anaemia [Recovered/Resolved]
  - Sepsis [Recovered/Resolved]
  - Disseminated intravascular coagulation [Unknown]

NARRATIVE: CASE EVENT DATE: 20160212
